FAERS Safety Report 5592913-2 (Version None)
Quarter: 2008Q1

REPORT INFORMATION
  Report Type: 
  Country: None (occurrence: None)
  Receive Date: 20080114
  Receipt Date: 20080114
  Transmission Date: 20080703
  Serious: Yes (Hospitalization)
  Sender: FDA-Public Use
  Company Number: None

PATIENT
  Age: 56 Year
  Sex: Male
  Weight: 99.7913 kg

DRUGS (1)
  1. METHYLPREDNISOLONE 4MG TAB [Suspect]
     Indication: INFLAMMATION
     Dosage: 6,5,4,3,2,1 PILLS FOR 6 DAYS  6 DAYS  PO
     Route: 048
     Dates: start: 20080105

REACTIONS (2)
  - MALAISE [None]
  - PALPITATIONS [None]
